FAERS Safety Report 7315197-3 (Version None)
Quarter: 2011Q1

REPORT INFORMATION
  Report Type: 
  Country: None (occurrence: None)
  Receive Date: 20110225
  Receipt Date: 20110215
  Transmission Date: 20110831
  Serious: Yes (Other)
  Sender: FDA-Public Use
  Company Number: US-ROCHE-734503

PATIENT
  Sex: Female
  Weight: 59 kg

DRUGS (2)
  1. ZOLOFT [Concomitant]
     Dates: start: 19991001
  2. ACCUTANE [Suspect]
     Indication: ACNE
     Route: 048
     Dates: start: 20000817, end: 20001031

REACTIONS (6)
  - DEPRESSION [None]
  - RECTAL HAEMORRHAGE [None]
  - NAUSEA [None]
  - INTESTINAL OBSTRUCTION [None]
  - ABDOMINAL PAIN [None]
  - CROHN'S DISEASE [None]
